FAERS Safety Report 13138001 (Version 3)
Quarter: 2017Q2

REPORT INFORMATION
  Report Type: Spontaneous
  Country: US (occurrence: US)
  Receive Date: 20170123
  Receipt Date: 20170410
  Transmission Date: 20170830
  Serious: No
  Sender: FDA-Public Use
  Company Number: US-ASTRAZENECA-2017SE05963

PATIENT
  Age: 73 Year
  Sex: Female
  Weight: 50 kg

DRUGS (2)
  1. LYNPARZA [Suspect]
     Active Substance: OLAPARIB
     Indication: OVARIAN CANCER
     Route: 048
     Dates: start: 201610
  2. LYNPARZA [Suspect]
     Active Substance: OLAPARIB
     Indication: OVARIAN CANCER
     Route: 048
     Dates: start: 20170325

REACTIONS (14)
  - Loss of consciousness [Unknown]
  - Blood test abnormal [Unknown]
  - Abdominal pain [Unknown]
  - Cardiac discomfort [Unknown]
  - Drug dose omission [Unknown]
  - Heart rate increased [Unknown]
  - Gait disturbance [Unknown]
  - Dyspnoea [Unknown]
  - Confusional state [Unknown]
  - Diarrhoea [Unknown]
  - Fatigue [Unknown]
  - Escherichia infection [Unknown]
  - Feeling abnormal [Unknown]
  - Nausea [Unknown]

NARRATIVE: CASE EVENT DATE: 20161228
